FAERS Safety Report 16491967 (Version 1)
Quarter: 2019Q2

REPORT INFORMATION
  Report Type: Spontaneous
  Country: US (occurrence: US)
  Receive Date: 20190518
  Receipt Date: 20190518
  Transmission Date: 20190711
  Serious: Yes (Hospitalization)
  Sender: FDA-Public Use
  Company Number: None

PATIENT
  Age: 70 Year
  Sex: Female
  Weight: 75.3 kg

DRUGS (2)
  1. BEVACIZUMAB. [Suspect]
     Active Substance: BEVACIZUMAB
     Dates: end: 20190328
  2. DOXIL [Suspect]
     Active Substance: DOXORUBICIN HYDROCHLORIDE
     Dates: end: 20190328

REACTIONS (6)
  - Vertigo [None]
  - Abdominal pain [None]
  - Colitis [None]
  - Hypophagia [None]
  - Hiatus hernia [None]
  - Decreased appetite [None]

NARRATIVE: CASE EVENT DATE: 20190401
